FAERS Safety Report 17907242 (Version 1)
Quarter: 2020Q2

REPORT INFORMATION
  Report Type: Spontaneous
  Country: US (occurrence: US)
  Receive Date: 20200617
  Receipt Date: 20200617
  Transmission Date: 20200714
  Serious: Yes (Hospitalization)
  Sender: FDA-Public Use
  Company Number: None

PATIENT
  Sex: Male

DRUGS (5)
  1. BOTOX [Suspect]
     Active Substance: ONABOTULINUMTOXINA
     Indication: FACIAL SPASM
     Dosage: ?          OTHER FREQUENCY:Q 12 WKS;?
     Route: 030
     Dates: start: 20180530
  2. ASPIRIN. [Concomitant]
     Active Substance: ASPIRIN
  3. CHLORTHALID [Concomitant]
     Active Substance: CHLORTHALIDONE
  4. HYDRALAZINE [Concomitant]
     Active Substance: HYDRALAZINE HYDROCHLORIDE
  5. SIMVASTATIN. [Concomitant]
     Active Substance: SIMVASTATIN

REACTIONS (2)
  - Therapy cessation [None]
  - Neoplasm malignant [None]
